FAERS Safety Report 4766440-6 (Version None)
Quarter: 2005Q3

REPORT INFORMATION
  Report Type: 
  Country: None (occurrence: None)
  Receive Date: 20050912
  Receipt Date: 20050901
  Transmission Date: 20060218
  Serious: Yes (Hospitalization)
  Sender: FDA-Public Use
  Company Number: US-ROCHE-416362

PATIENT
  Age: 33 Year
  Sex: Female
  Weight: 95.3 kg

DRUGS (5)
  1. CELLCEPT [Suspect]
     Route: 048
     Dates: start: 20050802, end: 20050810
  2. CELLCEPT [Suspect]
     Dosage: STRENGTH: 500 MG FORMULATION: TABLET
     Route: 048
     Dates: start: 20040415, end: 20050415
  3. CYTOXAN [Interacting]
     Route: 065
     Dates: start: 20021215, end: 20030715
  4. CYTOXAN [Interacting]
     Route: 065
     Dates: start: 20050815
  5. STEROIDS NOS [Concomitant]
     Dates: start: 20021215, end: 20030715

REACTIONS (12)
  - ALOPECIA [None]
  - BACK PAIN [None]
  - CHEST PAIN [None]
  - CONDITION AGGRAVATED [None]
  - DECREASED IMMUNE RESPONSIVENESS [None]
  - DIARRHOEA [None]
  - DRUG INTERACTION [None]
  - NEUTROPENIA [None]
  - PYREXIA [None]
  - RENAL DISORDER [None]
  - SYSTEMIC LUPUS ERYTHEMATOSUS [None]
  - VOMITING [None]
